FAERS Safety Report 7492201-3 (Version None)
Quarter: 2011Q2

REPORT INFORMATION
  Report Type: 
  Country: None (occurrence: None)
  Receive Date: 20110519
  Receipt Date: 20101103
  Transmission Date: 20111010
  Serious: No
  Sender: FDA-Public Use
  Company Number: US-NOVEN-ALL1-2010-05845

PATIENT
  Sex: Male

DRUGS (1)
  1. DAYTRANA [Suspect]
     Dosage: 30 MG, 1X/DAY:QD
     Route: 062
     Dates: start: 20061101

REACTIONS (2)
  - DISTURBANCE IN SOCIAL BEHAVIOUR [None]
  - PRODUCT QUALITY ISSUE [None]
